FAERS Safety Report 25184796 (Version 1)
Quarter: 2025Q2

REPORT INFORMATION
  Report Type: Spontaneous
  Country: US (occurrence: US)
  Receive Date: 20250410
  Receipt Date: 20250410
  Transmission Date: 20250716
  Serious: No
  Sender: ROCHE
  Company Number: US-ROCHE-10000247240

PATIENT
  Sex: Female
  Weight: 57.15 kg

DRUGS (2)
  1. ERIVEDGE [Suspect]
     Active Substance: VISMODEGIB
     Indication: Basal cell carcinoma
     Route: 065
     Dates: start: 2023
  2. ERIVEDGE [Suspect]
     Active Substance: VISMODEGIB
     Route: 065
     Dates: start: 202403

REACTIONS (9)
  - Tooth loss [Not Recovered/Not Resolved]
  - Tooth dislocation [Not Recovered/Not Resolved]
  - Speech disorder [Not Recovered/Not Resolved]
  - Feeding disorder [Not Recovered/Not Resolved]
  - Dysphagia [Not Recovered/Not Resolved]
  - Off label use [Unknown]
  - Alopecia [Recovered/Resolved]
  - Muscle spasms [Recovered/Resolved]
  - Drooling [Not Recovered/Not Resolved]
